FAERS Safety Report 4451323-1 (Version None)
Quarter: 2004Q3

REPORT INFORMATION
  Report Type: 
  Country: None (occurrence: None)
  Receive Date: 20040916
  Receipt Date: 20040914
  Transmission Date: 20050211
  Serious: Yes (Death, Hospitalization)
  Sender: FDA-Public Use
  Company Number: FRPFM-E-20040100

PATIENT
  Age: 54 Year
  Sex: Female

DRUGS (3)
  1. NAVELBINE [Suspect]
     Route: 042
     Dates: start: 20040528, end: 20040528
  2. FLUOROURACIL [Suspect]
     Route: 042
     Dates: start: 20040528, end: 20040528
  3. HERCEPTIN [Suspect]
     Indication: BONE CANCER METASTATIC
     Route: 042
     Dates: start: 20030901, end: 20040501

REACTIONS (12)
  - ANAEMIA [None]
  - BIOPSY BONE MARROW ABNORMAL [None]
  - CARDIAC FAILURE [None]
  - COAGULOPATHY [None]
  - DYSPEPSIA [None]
  - ENDOSCOPY ABNORMAL [None]
  - GENERAL PHYSICAL HEALTH DETERIORATION [None]
  - NEUTROPENIA [None]
  - PANCYTOPENIA [None]
  - PULMONARY ALVEOLAR HAEMORRHAGE [None]
  - RESPIRATORY DISORDER [None]
  - THROMBOCYTOPENIA [None]
